FAERS Safety Report 18956224 (Version 1)
Quarter: 2021Q1

REPORT INFORMATION
  Report Type: Spontaneous
  Country: DE (occurrence: DE)
  Receive Date: 20210301
  Receipt Date: 20210301
  Transmission Date: 20210420
  Serious: Yes (Hospitalization, Other)
  Sender: FDA-Public Use
  Company Number: DE-ASTRAZENECA-2021A092674

PATIENT
  Age: 862 Month
  Sex: Female
  Weight: 42 kg

DRUGS (15)
  1. FUROSEMIDE. [Concomitant]
     Active Substance: FUROSEMIDE
     Dosage: 40
     Route: 065
     Dates: start: 201606
  2. SPIRONOLACTONE. [Concomitant]
     Active Substance: SPIRONOLACTONE
     Route: 065
  3. SACUBITRILE/VALSARTAN [Concomitant]
     Dosage: 24/26 MG TWO TIMES DAILY
     Route: 065
  4. RIVAROXABAN [Concomitant]
     Active Substance: RIVAROXABAN
     Route: 065
  5. BISOPROLOL [Concomitant]
     Active Substance: BISOPROLOL
     Dosage: 5 MG 1/2?0?0
     Route: 065
  6. BISOPROLOL [Concomitant]
     Active Substance: BISOPROLOL
     Route: 065
  7. DAPAGLIFLOZIN. [Suspect]
     Active Substance: DAPAGLIFLOZIN
     Indication: CARDIAC FAILURE CHRONIC
     Route: 048
  8. OLMESARTAN/AMLODIPINE [Concomitant]
     Active Substance: AMLODIPINE BESYLATE\OLMESARTAN MEDOXOMIL
     Dosage: 20/ 5/12.5 MG DAILY
     Route: 065
  9. DONEPEZIL. [Concomitant]
     Active Substance: DONEPEZIL
     Route: 065
  10. CANDESARTAN / HYDROCHLOROTHIAZIDE [Suspect]
     Active Substance: CANDESARTAN CILEXETIL\HYDROCHLOROTHIAZIDE
     Dosage: 8/12.5 MG DAILY
     Route: 048
  11. PANTOPRAZOLE [Concomitant]
     Active Substance: PANTOPRAZOLE
     Route: 065
  12. SPIRONOLACTONE/FUROSEMIDE [Concomitant]
     Active Substance: FUROSEMIDE\SPIRONOLACTONE
     Dosage: 50/20 DAILY
     Route: 065
  13. SIMVASTATIN / EZETIMIBE [Concomitant]
     Dosage: 10/20 MG AT NIGHT
     Route: 065
  14. TORSEMIDE. [Concomitant]
     Active Substance: TORSEMIDE
     Route: 065
  15. SACUBITRILE/VALSARTAN [Concomitant]
     Dosage: 24/26 MG DAILY
     Route: 065

REACTIONS (11)
  - Respiratory failure [Unknown]
  - Brain natriuretic peptide abnormal [Unknown]
  - Cardiac failure [Unknown]
  - Dizziness [Unknown]
  - Therapeutic product effect decreased [Unknown]
  - Performance status decreased [Unknown]
  - General physical health deterioration [Unknown]
  - Weight decreased [Unknown]
  - Fatigue [Unknown]
  - Dyspnoea [Unknown]
  - Malaise [Unknown]

NARRATIVE: CASE EVENT DATE: 201207
